FAERS Safety Report 10927586 (Version 3)
Quarter: 2015Q3

REPORT INFORMATION
  Report Type: Spontaneous
  Country: US (occurrence: US)
  Receive Date: 20150318
  Receipt Date: 20150714
  Transmission Date: 20151125
  Serious: Yes (Other)
  Sender: FDA-Public Use
  Company Number: US-009507513-1503USA007189

PATIENT
  Sex: Female

DRUGS (2)
  1. IMPLANON [Suspect]
     Active Substance: ETONOGESTREL
     Dosage: STRENGTH 68 (UNIT UNKNOWN), 1ROD /THREE YEARS, LEFT ARM
  2. IMPLANON [Suspect]
     Active Substance: ETONOGESTREL
     Dosage: UNKNOWN
     Route: 059

REACTIONS (5)
  - Medical device complication [Recovered/Resolved]
  - Device difficult to use [Recovered/Resolved]
  - General anaesthesia [Recovered/Resolved]
  - Surgery [Recovered/Resolved]
  - Device deployment issue [Recovered/Resolved]
